FAERS Safety Report 11283090 (Version 1)
Quarter: 2015Q3

REPORT INFORMATION
  Report Type: Spontaneous
  Country: US (occurrence: None)
  Receive Date: 20150717
  Receipt Date: 20150717
  Transmission Date: 20151125
  Serious: Yes (Hospitalization, Other)
  Sender: FDA-Public Use
  Company Number: None

PATIENT
  Age: 52 Year
  Sex: Female
  Weight: 63.5 kg

DRUGS (10)
  1. SPIRIVA [Concomitant]
     Active Substance: TIOTROPIUM BROMIDE MONOHYDRATE
  2. FLEXERIL [Concomitant]
     Active Substance: CYCLOBENZAPRINE HYDROCHLORIDE
  3. TYLENOL [Concomitant]
     Active Substance: ACETAMINOPHEN
  4. CLONZEPAM [Concomitant]
  5. CANE LEXAPRO [Concomitant]
  6. REMERON [Concomitant]
     Active Substance: MIRTAZAPINE
  7. ADVAR [Concomitant]
  8. LEVOFLOXIN [Suspect]
     Active Substance: LEVOFLOXACIN
     Indication: BRONCHITIS
     Route: 042
     Dates: end: 20150208
  9. MINIPRESS [Concomitant]
     Active Substance: PRAZOSIN HYDROCHLORIDE
  10. DECOFLENIC [Concomitant]

REACTIONS (6)
  - Burning sensation [None]
  - Diarrhoea [None]
  - Weight decreased [None]
  - Pain in extremity [None]
  - Back pain [None]
  - Abasia [None]

NARRATIVE: CASE EVENT DATE: 20150115
